FAERS Safety Report 9694139 (Version 1)
Quarter: 2013Q4

REPORT INFORMATION
  Report Type: Spontaneous
  Country: US (occurrence: US)
  Receive Date: 20131118
  Receipt Date: 20131118
  Transmission Date: 20140711
  Serious: No
  Sender: FDA-Public Use
  Company Number: US-009507513-1311USA005462

PATIENT
  Age: 9 Year
  Sex: Female

DRUGS (2)
  1. SINGULAIR [Suspect]
     Indication: RHINITIS ALLERGIC
     Dosage: UNK
     Route: 048
  2. SINGULAIR [Suspect]
     Indication: ASTHMA
     Dosage: UNK
     Route: 048

REACTIONS (3)
  - Diarrhoea [Unknown]
  - Flatulence [Unknown]
  - Malaise [Unknown]
